FAERS Safety Report 12839077 (Version 1)
Quarter: 2016Q4

REPORT INFORMATION
  Report Type: Report from Study
  Country: None (occurrence: US)
  Receive Date: 20161012
  Receipt Date: 20161012
  Transmission Date: 20170207
  Serious: Yes (Hospitalization, Other)
  Sender: FDA-Public Use
  Company Number: US-ABBVIE-16K-163-1748634-00

PATIENT
  Age: 43 Year
  Sex: Male
  Weight: 68.1 kg

DRUGS (22)
  1. CYANOCOBALAMIN. [Concomitant]
     Active Substance: CYANOCOBALAMIN
     Indication: VITAMIN SUPPLEMENTATION
  2. TESTOSTERONE CYPIONATE. [Concomitant]
     Active Substance: TESTOSTERONE CYPIONATE
     Indication: BLOOD TESTOSTERONE DECREASED
  3. HYDROMORPHONE [Concomitant]
     Active Substance: HYDROMORPHONE
     Indication: CROHN^S DISEASE
  4. HUMIRA [Suspect]
     Active Substance: ADALIMUMAB
     Indication: CROHN^S DISEASE
     Route: 058
     Dates: start: 201104, end: 201609
  5. CLONOPIN [Concomitant]
     Active Substance: CLONAZEPAM
     Indication: ANXIETY
  6. PROMETHAZINE [Concomitant]
     Active Substance: PROMETHAZINE\PROMETHAZINE HYDROCHLORIDE
     Indication: NAUSEA
  7. FENTANYL PCH [Concomitant]
     Indication: ABDOMINAL PAIN
  8. AZATHIOPRINE. [Concomitant]
     Active Substance: AZATHIOPRINE
     Indication: CROHN^S DISEASE
  9. POTASSIUM CHLORIDE. [Concomitant]
     Active Substance: POTASSIUM CHLORIDE
     Indication: MINERAL SUPPLEMENTATION
  10. VITAMIN D/CALCIUM [Concomitant]
     Active Substance: CALCIUM\VITAMIN D
     Indication: VITAMIN SUPPLEMENTATION
  11. ALLEGRA-D [Concomitant]
     Active Substance: FEXOFENADINE\PSEUDOEPHEDRINE
     Indication: SINUSITIS
  12. ZOLPIDEM [Concomitant]
     Active Substance: ZOLPIDEM\ZOLPIDEM TARTRATE
     Indication: SLEEP DISORDER
  13. PANTOPRAZOLE [Concomitant]
     Active Substance: PANTOPRAZOLE SODIUM
     Indication: GASTROOESOPHAGEAL REFLUX DISEASE
  14. FENTANYL PCH [Concomitant]
     Indication: CROHN^S DISEASE
  15. FLONASE [Concomitant]
     Active Substance: FLUTICASONE PROPIONATE
     Indication: SINUSITIS
  16. MAGNESIUM LACTATE [Concomitant]
     Active Substance: MAGNESIUM LACTATE
     Indication: MINERAL SUPPLEMENTATION
  17. CYCLOBENZAPRINE [Concomitant]
     Active Substance: CYCLOBENZAPRINE
     Indication: MUSCLE SPASMS
  18. HYDROMORPHONE [Concomitant]
     Active Substance: HYDROMORPHONE
     Indication: ABDOMINAL PAIN
  19. HUMIRA [Suspect]
     Active Substance: ADALIMUMAB
     Route: 058
     Dates: start: 201610
  20. LOMOTIL [Concomitant]
     Active Substance: ATROPINE SULFATE\DIPHENOXYLATE HYDROCHLORIDE
     Indication: CROHN^S DISEASE
  21. AZATHIOPRINE. [Concomitant]
     Active Substance: AZATHIOPRINE
     Indication: IMMUNOSUPPRESSANT DRUG THERAPY
  22. VITAMIN D/CALCIUM [Concomitant]
     Active Substance: CALCIUM\VITAMIN D
     Indication: MINERAL SUPPLEMENTATION

REACTIONS (13)
  - Thrombosis [Recovered/Resolved]
  - Rhabdomyolysis [Recovered/Resolved]
  - Oxygen saturation decreased [Recovered/Resolved]
  - Dysphagia [Recovered/Resolved]
  - Pleural effusion [Recovering/Resolving]
  - Vomiting [Not Recovered/Not Resolved]
  - Dysphagia [Not Recovered/Not Resolved]
  - Cough [Recovered/Resolved]
  - Peripheral swelling [Recovering/Resolving]
  - Paralysis [Recovered/Resolved]
  - Paralysis [Recovered/Resolved]
  - Tachycardia [Recovered/Resolved]
  - Atrial fibrillation [Recovered/Resolved]

NARRATIVE: CASE EVENT DATE: 20111231
